FAERS Safety Report 16154673 (Version 1)
Quarter: 2019Q2

REPORT INFORMATION
  Report Type: Spontaneous
  Country: HU (occurrence: HU)
  Receive Date: 20190403
  Receipt Date: 20190403
  Transmission Date: 20190711
  Serious: Yes (Hospitalization)
  Sender: FDA-Public Use
  Company Number: HU-ELI_LILLY_AND_COMPANY-HU201903016032

PATIENT
  Age: 65 Year
  Sex: Male

DRUGS (2)
  1. ERBITUX [Suspect]
     Active Substance: CETUXIMAB
     Indication: PHARYNGEAL CANCER
     Dosage: 400 MG/M2, UNK
     Route: 041
     Dates: start: 20190218, end: 20190218
  2. ERBITUX [Suspect]
     Active Substance: CETUXIMAB
     Indication: EPIGLOTTIC CARCINOMA

REACTIONS (4)
  - Restlessness [Recovered/Resolved]
  - Altered state of consciousness [Recovered/Resolved]
  - Bronchospasm [Recovered/Resolved]
  - Erythema [Recovered/Resolved]

NARRATIVE: CASE EVENT DATE: 20190218
